FAERS Safety Report 26122115 (Version 1)
Quarter: 2025Q4

REPORT INFORMATION
  Report Type: Spontaneous
  Country: JP (occurrence: JP)
  Receive Date: 20251204
  Receipt Date: 20251204
  Transmission Date: 20260117
  Serious: Yes (Death)
  Sender: PURDUE
  Company Number: JP-NAPPMUNDI-GBR-2025-0130875

PATIENT
  Age: 76 Year
  Sex: Male

DRUGS (2)
  1. MS CONTIN [Suspect]
     Active Substance: MORPHINE SULFATE
     Indication: Product used for unknown indication
     Dosage: 20 MILLIGRAM, DAILY
     Route: 065
     Dates: start: 20251112
  2. MS CONTIN [Suspect]
     Active Substance: MORPHINE SULFATE
     Dosage: 4 DOSAGE FORM
     Route: 065

REACTIONS (1)
  - Breakthrough pain [Fatal]

NARRATIVE: CASE EVENT DATE: 20251119
